FAERS Safety Report 6725725-4 (Version None)
Quarter: 2010Q2

REPORT INFORMATION
  Report Type: 
  Country: None (occurrence: None)
  Receive Date: 20100514
  Receipt Date: 20100505
  Transmission Date: 20101027
  Serious: Yes (Hospitalization)
  Sender: FDA-Public Use
  Company Number: BR-ASTRAZENECA-2010SE18040

PATIENT
  Age: 42 Year
  Sex: Female
  Weight: 83 kg

DRUGS (3)
  1. ZOLADEX [Suspect]
     Indication: UTERINE LEIOMYOMA
     Route: 058
     Dates: start: 20100323
  2. OLMETEC HCT [Concomitant]
     Indication: HYPERTENSION
     Dosage: 20/12.5 MG
     Route: 048
     Dates: start: 20090101, end: 20100330
  3. AMLOCOR [Concomitant]
     Indication: HYPERTENSION

REACTIONS (7)
  - FEELING COLD [None]
  - HEADACHE [None]
  - HOT FLUSH [None]
  - HYPERHIDROSIS [None]
  - HYPERTENSION [None]
  - INSOMNIA [None]
  - TREMOR [None]
